FAERS Safety Report 5987916-X (Version None)
Quarter: 2008Q4

REPORT INFORMATION
  Report Type: 
  Country: None (occurrence: None)
  Receive Date: 20081210
  Receipt Date: 20080417
  Transmission Date: 20090506
  Serious: No
  Sender: FDA-Public Use
  Company Number: US-AMGEN-KDL274348

PATIENT
  Sex: Female

DRUGS (4)
  1. ENBREL [Suspect]
     Indication: RHEUMATOID ARTHRITIS
     Dates: start: 20080225, end: 20080317
  2. PAROXETINE HCL [Concomitant]
  3. PROCARDIA XL [Concomitant]
     Dates: start: 20071029
  4. NEXIUM [Concomitant]
     Dates: start: 20080401

REACTIONS (2)
  - DYSPHONIA [None]
  - LYMPHADENOPATHY [None]
